FAERS Safety Report 13616065 (Version 1)
Quarter: 2017Q2

REPORT INFORMATION
  Report Type: Spontaneous
  Country: US (occurrence: US)
  Receive Date: 20170606
  Receipt Date: 20170606
  Transmission Date: 20170830
  Serious: No
  Sender: FDA-Public Use
  Company Number: US-TEVA-702062USA

PATIENT
  Sex: Female

DRUGS (6)
  1. LETROZOLE. [Concomitant]
     Active Substance: LETROZOLE
  2. GABAPENTIN. [Concomitant]
     Active Substance: GABAPENTIN
  3. FAMOTIDINE. [Concomitant]
     Active Substance: FAMOTIDINE
  4. CYCLOBENZAPRINE. [Suspect]
     Active Substance: CYCLOBENZAPRINE
     Route: 065
  5. LOSARTAN. [Concomitant]
     Active Substance: LOSARTAN
  6. LOVASTATIN. [Concomitant]
     Active Substance: LOVASTATIN

REACTIONS (1)
  - Drug hypersensitivity [Unknown]
